FAERS Safety Report 6839747-6 (Version None)
Quarter: 2010Q3

REPORT INFORMATION
  Report Type: 
  Country: None (occurrence: None)
  Receive Date: 20100714
  Receipt Date: 20100705
  Transmission Date: 20110219
  Serious: Yes (Other)
  Sender: FDA-Public Use
  Company Number: JP-NOVOPROD-311091

PATIENT
  Age: 70 Year
  Sex: Male

DRUGS (1)
  1. NOVORAPID CHU FLEXPEN [Suspect]
     Indication: DIABETES MELLITUS
     Dosage: /SC
     Route: 058
     Dates: start: 20080701

REACTIONS (2)
  - FACE OEDEMA [None]
  - HYPOGLYCAEMIA [None]
